FAERS Safety Report 5904991-9 (Version None)
Quarter: 2008Q4

REPORT INFORMATION
  Report Type: 
  Country: None (occurrence: None)
  Receive Date: 20081001
  Receipt Date: 20080916
  Transmission Date: 20090506
  Serious: Yes (Hospitalization)
  Sender: FDA-Public Use
  Company Number: US-AVENTIS-200812834US

PATIENT
  Sex: Female
  Weight: 89.5 kg

DRUGS (12)
  1. APIDRA [Suspect]
     Dosage: DOSE: SLIDING SCALE
     Route: 051
     Dates: start: 20080101
  2. APIDRA [Suspect]
     Dosage: DOSE: SLIDING SCALE
     Route: 058
  3. APIDRA [Suspect]
     Dosage: DOSE: SLIDING SCALE
     Route: 058
  4. OPTICLIK GREY [Suspect]
     Dates: start: 20080101
  5. OPTICLIK GREY [Suspect]
     Dates: start: 20080101
  6. LANTUS [Concomitant]
  7. GLUCOPHAGE [Concomitant]
  8. AVANDIA [Concomitant]
  9. ALTACE [Concomitant]
  10. TRICOR                             /00090101/ [Concomitant]
  11. CELEBREX [Concomitant]
  12. RELAFEN [Concomitant]
     Dosage: DOSE: UNK

REACTIONS (3)
  - BLOOD GLUCOSE INCREASED [None]
  - CYSTITIS [None]
  - DRUG INEFFECTIVE [None]
